FAERS Safety Report 21260216 (Version 1)
Quarter: 2022Q3

REPORT INFORMATION
  Report Type: Spontaneous
  Country: US (occurrence: US)
  Receive Date: 20220826
  Receipt Date: 20220826
  Transmission Date: 20221027
  Serious: Yes (Hospitalization, Other)
  Sender: FDA-Public Use
  Company Number: US-BoehringerIngelheim-2022-BI-188893

PATIENT
  Sex: Male

DRUGS (1)
  1. SPIRIVA RESPIMAT [Suspect]
     Active Substance: TIOTROPIUM BROMIDE
     Indication: Chronic obstructive pulmonary disease
     Dosage: 2.5 MCG; 2 PUFFS DAILY

REACTIONS (6)
  - Systemic lupus erythematosus [Unknown]
  - Atrial fibrillation [Unknown]
  - Sepsis [Unknown]
  - Irritable bowel syndrome [Unknown]
  - Intestinal perforation [Unknown]
  - Device defective [Unknown]
